FAERS Safety Report 24224673 (Version 3)
Quarter: 2024Q3

REPORT INFORMATION
  Report Type: Report from Study
  Country: US (occurrence: US)
  Receive Date: 20240819
  Receipt Date: 20240916
  Transmission Date: 20241017
  Serious: Yes (Hospitalization)
  Sender: OTSUKA
  Company Number: US-OTSUKA-2024_021771

PATIENT
  Age: 76 Year
  Sex: Male
  Weight: 112.5 kg

DRUGS (2)
  1. CEDAZURIDINE\DECITABINE [Suspect]
     Active Substance: CEDAZURIDINE\DECITABINE
     Indication: Myelodysplastic syndrome
     Dosage: 1 DF (35 MG DECITABINE AND 100 MG CEDAZURIDINE) DAILY ON DAY 1-5 OF EACH 28 DAY CYCLE
     Route: 048
     Dates: start: 20240716
  2. POSACONAZOLE [Concomitant]
     Active Substance: POSACONAZOLE
     Indication: Myelodysplastic syndrome
     Dosage: 3 DF, QD
     Route: 065
     Dates: start: 20240716

REACTIONS (6)
  - Cardiac failure [Unknown]
  - Thrombosis [Unknown]
  - Leukaemia [Unknown]
  - Pyrexia [Unknown]
  - Pneumonia [Recovered/Resolved]
  - Pneumonia [Unknown]

NARRATIVE: CASE EVENT DATE: 20240816
